FAERS Safety Report 14239088 (Version 1)
Quarter: 2017Q4

REPORT INFORMATION
  Report Type: Spontaneous
  Country: US (occurrence: US)
  Receive Date: 20171127
  Receipt Date: 20171127
  Transmission Date: 20180321
  Serious: Yes (Life-Threatening, Other)
  Sender: FDA-Public Use
  Company Number: None

PATIENT
  Age: 61 Year
  Sex: Female
  Weight: 58.9 kg

DRUGS (7)
  1. OMNIPAQUE [Concomitant]
     Active Substance: IOHEXOL
  2. MORPHINE [Concomitant]
     Active Substance: MORPHINE
  3. ONDANSETRON [Concomitant]
     Active Substance: ONDANSETRON
  4. BENZOCAINE TOPICAL SPRAY [Suspect]
     Active Substance: BENZOCAINE
     Indication: GASTROINTESTINAL TUBE INSERTION
     Route: 061
     Dates: start: 20171126, end: 20171126
  5. BENZOCAINE TOPICAL SPRAY [Suspect]
     Active Substance: BENZOCAINE
     Indication: LOCAL ANAESTHESIA
     Route: 061
     Dates: start: 20171126, end: 20171126
  6. VISCOUS LIDOCAINE TOPICAL [Concomitant]
  7. LORAZEPAM. [Concomitant]
     Active Substance: LORAZEPAM

REACTIONS (2)
  - Oxygen saturation decreased [None]
  - Methaemoglobinaemia [None]

NARRATIVE: CASE EVENT DATE: 20171127
